FAERS Safety Report 5555536-7 (Version None)
Quarter: 2007Q4

REPORT INFORMATION
  Report Type: 
  Country: None (occurrence: None)
  Receive Date: 20071213
  Receipt Date: 20071207
  Transmission Date: 20080405
  Serious: Yes (Hospitalization)
  Sender: FDA-Public Use
  Company Number: JP-ABBOTT-07P-087-0427888-00

PATIENT
  Sex: Female

DRUGS (8)
  1. KLARICID [Suspect]
     Indication: MYCOBACTERIA TEST
     Route: 048
     Dates: start: 20060721, end: 20060908
  2. EFAVIRENZ [Concomitant]
     Indication: HIV INFECTION
     Dosage: 800 MG DAILY
     Route: 048
     Dates: start: 20060721, end: 20060910
  3. EFAVIRENZ [Concomitant]
     Dosage: 600 MG DAILY
     Route: 048
     Dates: start: 20060911, end: 20070105
  4. FOSAMPRENAVIR CALCIUM HYDRATE [Concomitant]
     Indication: HIV INFECTION
     Route: 048
     Dates: start: 20070202
  5. ABACAVIR SULFATE W/LAMIVUDINE [Concomitant]
     Indication: HIV INFECTION
     Dosage: ONE TAB DAILY
     Route: 048
     Dates: start: 20060515, end: 20070105
  6. ABACAVIR SULFATE W/LAMIVUDINE [Concomitant]
     Dosage: ONE TAB DAILY
     Route: 048
     Dates: start: 20070202
  7. RIFAMPICIN [Concomitant]
     Indication: OPPORTUNISTIC INFECTION PROPHYLAXIS
     Route: 048
     Dates: start: 20060721, end: 20060908
  8. ETHAMBUTOL HCL [Concomitant]
     Indication: OPPORTUNISTIC INFECTION PROPHYLAXIS
     Route: 048
     Dates: start: 20060721, end: 20060908

REACTIONS (4)
  - ALTERED STATE OF CONSCIOUSNESS [None]
  - DIABETES INSIPIDUS [None]
  - HYPERNATRAEMIA [None]
  - SYNCOPE [None]
